FAERS Safety Report 4758750-3 (Version None)
Quarter: 2005Q3

REPORT INFORMATION
  Report Type: 
  Country: None (occurrence: None)
  Receive Date: 20050831
  Receipt Date: 20050831
  Transmission Date: 20060218
  Serious: Yes (Other)
  Sender: FDA-Public Use
  Company Number: None

PATIENT
  Age: 33 Year
  Sex: Female

DRUGS (1)
  1. DEMEROL [Suspect]
     Indication: RENAL PAIN
     Dosage: 75 MG INJ
     Dates: start: 20050104

REACTIONS (7)
  - AGITATION [None]
  - CONVULSION [None]
  - CYANOSIS [None]
  - DYSPNOEA [None]
  - FOAMING AT MOUTH [None]
  - NAUSEA [None]
  - PALLOR [None]
